FAERS Safety Report 7951318-7 (Version None)
Quarter: 2011Q4

REPORT INFORMATION
  Report Type: 
  Country: None (occurrence: None)
  Receive Date: 20111201
  Receipt Date: 20111125
  Transmission Date: 20120403
  Serious: Yes (Other)
  Sender: FDA-Public Use
  Company Number: GB-ASTELLAS-2011EU006931

PATIENT
  Sex: Female
  Weight: 74.2 kg

DRUGS (4)
  1. VESICARE [Suspect]
     Dosage: 5 MG, UNKNOWN/D
     Route: 048
  2. SIMVASTATIN [Concomitant]
     Dosage: UNK
     Route: 065
  3. ENALAPRIL MALEATE [Concomitant]
     Dosage: UNK
     Route: 065
  4. EZETIMIBE [Concomitant]
     Dosage: UNK
     Route: 065

REACTIONS (2)
  - AMNESIA [None]
  - SOMNOLENCE [None]
